FAERS Safety Report 8942177 (Version 2)
Quarter: 2013Q1

REPORT INFORMATION
  Report Type: Spontaneous
  Country: US (occurrence: US)
  Receive Date: 20121202
  Receipt Date: 20130109
  Transmission Date: 20140127
  Serious: No
  Sender: FDA-Public Use
  Company Number: US-TEVA-369497USA

PATIENT
  Age: 44 Year
  Sex: Male
  Weight: 103.97 kg

DRUGS (6)
  1. QNASL [Suspect]
     Indication: RHINITIS SEASONAL
     Dosage: 2 PUFFS EACH NOSTRIL QD
     Route: 045
     Dates: start: 20121030, end: 20121106
  2. QNASL [Suspect]
     Indication: RHINITIS PERENNIAL
  3. LOSARTAN POTASSIUM W/HYDROCHLOROTHIAZIDE [Concomitant]
     Indication: HYPERTENSION
     Dosage: 50 MG/12.5 MG QD
     Route: 048
  4. METFORMIN [Concomitant]
     Indication: DIABETES MELLITUS
     Dosage: 1700 MILLIGRAM DAILY;
  5. SINGULAIR [Concomitant]
     Dosage: 10 MILLIGRAM DAILY;
  6. ZYRTEC [Concomitant]
     Dosage: 10 MILLIGRAM DAILY;

REACTIONS (2)
  - Nasal discomfort [Recovered/Resolved]
  - Nasal inflammation [Not Recovered/Not Resolved]
